FAERS Safety Report 8017571-9 (Version None)
Quarter: 2011Q4

REPORT INFORMATION
  Report Type: 
  Country: None (occurrence: None)
  Receive Date: 20111229
  Receipt Date: 20111229
  Transmission Date: 20120403
  Serious: Yes (Hospitalization)
  Sender: FDA-Public Use
  Company Number: None

PATIENT
  Age: 66 Year
  Sex: Male
  Weight: 67.2 kg

DRUGS (6)
  1. ZOCOR [Suspect]
     Dosage: 20 MG QHS PO CHRONIC
     Route: 048
  2. HALDOL [Suspect]
     Indication: AGITATION
     Dosage: 1 MG BID PO
     Route: 048
  3. HALDOL [Suspect]
     Dosage: 1 MG Q6H PRN PO CHRONIC
     Route: 048
  4. NEURONTIN [Concomitant]
  5. ARICEPT [Concomitant]
  6. ATIVAN [Concomitant]

REACTIONS (2)
  - BLOOD CREATINE PHOSPHOKINASE INCREASED [None]
  - AGITATION [None]
